FAERS Safety Report 9723506 (Version 2)
Quarter: 2013Q4

REPORT INFORMATION
  Report Type: Report from Study
  Country: US (occurrence: US)
  Receive Date: 20131202
  Receipt Date: 20131220
  Transmission Date: 20140711
  Serious: Yes (Hospitalization, Other)
  Sender: FDA-Public Use
  Company Number: US-ABBVIE-13P-163-1173306-00

PATIENT
  Age: 26 Year
  Sex: Female

DRUGS (2)
  1. HUMIRA [Suspect]
     Indication: CROHN^S DISEASE
     Dates: start: 20120216, end: 2013
  2. BIRTH CONTROL [Concomitant]
     Indication: PRODUCT USED FOR UNKNOWN INDICATION
     Dosage: PILLS

REACTIONS (10)
  - Gastrointestinal perforation [Not Recovered/Not Resolved]
  - Gastrointestinal perforation [Not Recovered/Not Resolved]
  - Fistula [Not Recovered/Not Resolved]
  - Appendicectomy [Unknown]
  - Colitis [Recovered/Resolved]
  - Crohn^s disease [Recovered/Resolved]
  - Vitello-intestinal duct remnant [Recovered/Resolved]
  - Intestinal perforation [Recovered/Resolved]
  - Abdominal pain [Recovered/Resolved]
  - Intestinal perforation [Unknown]
